FAERS Safety Report 7630947-4 (Version None)
Quarter: 2011Q3

REPORT INFORMATION
  Report Type: 
  Country: None (occurrence: None)
  Receive Date: 20110725
  Receipt Date: 20110714
  Transmission Date: 20111222
  Serious: Yes (Hospitalization, Other)
  Sender: FDA-Public Use
  Company Number: US-BIOGENIDEC-2011BI023989

PATIENT
  Age: 68 Year
  Sex: Female

DRUGS (25)
  1. MIDODRINE HYDROCLORIDE [Concomitant]
     Route: 048
  2. NORCO [Concomitant]
     Route: 048
  3. SUDAFED 12 HOUR [Concomitant]
     Route: 048
  4. SEROQUEL [Concomitant]
     Route: 048
  5. HYDROXYCHLOROQUINE SULFATE [Concomitant]
     Route: 048
  6. METOPROLOL TARTRATE [Concomitant]
     Route: 048
  7. TRILEPTAL [Concomitant]
     Route: 048
  8. PRIMIDONE [Concomitant]
     Route: 048
  9. PRIMIDONE [Concomitant]
     Route: 048
  10. FERROUS SULFATE TAB [Concomitant]
     Route: 048
  11. NASONEX [Concomitant]
     Route: 045
  12. LEXAPRO [Concomitant]
     Route: 048
  13. SINGULAIR [Concomitant]
     Route: 048
  14. ASPIRIN [Concomitant]
     Route: 048
  15. ATIVAN [Concomitant]
     Route: 048
  16. VITAMIN D [Concomitant]
     Route: 048
  17. PEPCID [Concomitant]
     Route: 048
  18. LISINOPRIL [Concomitant]
     Route: 048
  19. ARTHRITIS PAIN FORMULA [Concomitant]
     Route: 048
  20. TYSABRI [Suspect]
     Indication: MULTIPLE SCLEROSIS
     Route: 042
     Dates: start: 20080411, end: 20110506
  21. PLAVIX [Concomitant]
     Route: 048
  22. ARICEPT [Concomitant]
     Route: 048
  23. ADVAIR DISKUS 100/50 [Concomitant]
     Route: 055
  24. SIMVASTATIN [Concomitant]
     Route: 048
  25. CALCIUM CARBONATE [Concomitant]
     Route: 048

REACTIONS (4)
  - FALL [None]
  - EXTRANODAL MARGINAL ZONE B-CELL LYMPHOMA (MALT TYPE) [None]
  - CARDIAC DISORDER [None]
  - HAEMATOMA [None]
